FAERS Safety Report 13008998 (Version 2)
Quarter: 2017Q2

REPORT INFORMATION
  Report Type: Spontaneous
  Country: US (occurrence: US)
  Receive Date: 20161208
  Receipt Date: 20170607
  Transmission Date: 20170830
  Serious: Yes (Other)
  Sender: FDA-Public Use
  Company Number: US-PFIZER INC-2016563925

PATIENT
  Age: 52 Year
  Sex: Female
  Weight: 48.99 kg

DRUGS (3)
  1. NORCO [Concomitant]
     Active Substance: ACETAMINOPHEN\HYDROCODONE BITARTRATE
     Indication: BACK PAIN
     Dosage: 10 MG, AS NEEDED
  2. LYRICA [Suspect]
     Active Substance: PREGABALIN
     Indication: PAIN
     Dosage: 300 MG, 2X/DAY
     Route: 048
     Dates: end: 20170531
  3. NORCO [Concomitant]
     Active Substance: ACETAMINOPHEN\HYDROCODONE BITARTRATE
     Dosage: 1/2 TO 1 TABLET EVERY 8 HOURS AS NEEDED

REACTIONS (8)
  - Motor dysfunction [Unknown]
  - Agitation [Unknown]
  - Limb injury [Unknown]
  - Fall [Unknown]
  - Mental disorder [Unknown]
  - Malaise [Unknown]
  - Blood pressure increased [Unknown]
  - Drug withdrawal syndrome [Unknown]

NARRATIVE: CASE EVENT DATE: 2017
